FAERS Safety Report 6546921-5 (Version None)
Quarter: 2009Q4

REPORT INFORMATION
  Report Type: 
  Country: None (occurrence: None)
  Receive Date: 20091215
  Receipt Date: 20090911
  Transmission Date: 20100525
  Serious: Yes (Hospitalization)
  Sender: FDA-Public Use
  Company Number: FEI2009-1906

PATIENT
  Age: 30 Year
  Sex: Female
  Weight: 57.6068 kg

DRUGS (2)
  1. INTRAUTERINE COPPER CONTRACEPTIVE [Suspect]
     Indication: CONTRACEPTION
     Dosage: INTRA-UTERINE
     Route: 015
     Dates: start: 20090724, end: 20090811
  2. ZYRTEC [Concomitant]

REACTIONS (3)
  - ABDOMINAL PAIN [None]
  - ENDOMETRITIS [None]
  - PELVIC INFLAMMATORY DISEASE [None]
